FAERS Safety Report 7272130-0 (Version None)
Quarter: 2011Q1

REPORT INFORMATION
  Report Type: 
  Country: None (occurrence: None)
  Receive Date: 20110203
  Receipt Date: 20110126
  Transmission Date: 20110831
  Serious: Yes (Hospitalization)
  Sender: FDA-Public Use
  Company Number: ES-ELI_LILLY_AND_COMPANY-ES201012000439

PATIENT
  Sex: Male
  Weight: 67 kg

DRUGS (16)
  1. PEMETREXED [Suspect]
     Indication: NON-SMALL CELL LUNG CANCER
     Dosage: 500 MG/M2, DAY 1 EVERY 21 DAYS
     Route: 042
     Dates: start: 20101015, end: 20101108
  2. NEXIUM [Concomitant]
     Indication: GASTRIC DISORDER
     Dosage: UNK, UNK
     Dates: start: 20100901
  3. FOLIC ACID [Concomitant]
     Indication: PROPHYLAXIS
     Dosage: UNK, UNK
     Dates: start: 20101006
  4. VITAMIN B-12 [Concomitant]
     Indication: PROPHYLAXIS
     Dosage: UNK, UNK
     Dates: start: 20101006
  5. MORPHINE [Concomitant]
     Indication: PAIN
     Dates: start: 20100901
  6. PARAPRES [Concomitant]
     Dates: start: 20000101
  7. IBUPROFENO [Concomitant]
     Dosage: UNK, UNK
     Dates: start: 20100901
  8. ONDANSETRON [Concomitant]
     Dates: start: 20101015
  9. TRANKIMAZIN [Concomitant]
     Indication: ANXIETY
     Dates: start: 20100901
  10. BEVACIZUMAB [Suspect]
     Indication: NON-SMALL CELL LUNG CANCER
     Dosage: 7.5 MG/KG, DAY 1 EVERY 21 DAYS
     Dates: start: 20101015, end: 20101108
  11. DIFLUCAN [Concomitant]
     Dates: start: 20101015
  12. TIOTROPIUM BROMIDE [Concomitant]
     Indication: DYSPNOEA
     Dates: start: 20100901
  13. SERETIDE [Concomitant]
     Dates: start: 20101015
  14. CISPLATIN [Suspect]
     Indication: NON-SMALL CELL LUNG CANCER
     Dosage: 75 MG/M2, DAY 1 EVERY 21 DAYS
     Route: 042
     Dates: start: 20101015, end: 20101108
  15. DEXAMETHASONE [Concomitant]
     Indication: PROPHYLAXIS
     Dates: start: 20101006
  16. MOTILIUM [Concomitant]
     Indication: PROPHYLAXIS
     Dates: start: 20100901

REACTIONS (1)
  - LARGE INTESTINE PERFORATION [None]
